FAERS Safety Report 17131955 (Version 1)
Quarter: 2019Q4

REPORT INFORMATION
  Report Type: Spontaneous
  Country: US (occurrence: US)
  Receive Date: 20191209
  Receipt Date: 20191209
  Transmission Date: 20200122
  Serious: No
  Sender: FDA-Public Use
  Company Number: US-UCBSA-2016046158

PATIENT
  Sex: Female

DRUGS (1)
  1. CIMZIA [Suspect]
     Active Substance: CERTOLIZUMAB PEGOL
     Indication: RHEUMATOID ARTHRITIS
     Dosage: 400 MG, EV 4 WEEKS, STRENGTH: 200 MG/ML
     Route: 058
     Dates: start: 201411

REACTIONS (7)
  - Drug ineffective [Unknown]
  - Hand deformity [Unknown]
  - Alopecia [Unknown]
  - Chest pain [Unknown]
  - Fatigue [Unknown]
  - Foot deformity [Unknown]
  - Constipation [Unknown]
